FAERS Safety Report 4424225-4 (Version None)
Quarter: 2004Q3

REPORT INFORMATION
  Report Type: 
  Country: None (occurrence: None)
  Receive Date: 20040809
  Receipt Date: 20040728
  Transmission Date: 20050211
  Serious: Yes (Life-Threatening, Hospitalization, Other)
  Sender: FDA-Public Use
  Company Number: DE-JNJFOC-20040707812

PATIENT
  Age: 78 Year
  Sex: Female

DRUGS (15)
  1. LEVOFLOXACIN [Suspect]
     Indication: PNEUMONIA
     Dosage: INTRAVENOUS
     Route: 042
     Dates: start: 20030903, end: 20030905
  2. INSULIN HUMAN REGULAR (INSULIN) [Concomitant]
  3. MYCOSTATIN ZINC (MYSTATIN) [Concomitant]
  4. ZINC OXIDE (ZINC OXIDE) [Concomitant]
  5. VANCOMYCIN [Concomitant]
  6. METRONZDAZOLE (METRONIDAZOLE) [Concomitant]
  7. KCL (POTASSIUM CHLORIDE) [Concomitant]
  8. FUROSEMIDE [Concomitant]
  9. MULTIVITAMIN [Concomitant]
  10. FERROUS SULPHATE (FERROUS SULFATE) [Concomitant]
  11. FOLIC ACID [Concomitant]
  12. SIMVASTATIN [Concomitant]
  13. ACETAMINOPHEN [Concomitant]
  14. HYDROCHLOROTHIAZIDE [Concomitant]
  15. MAXIDE (DYAZIDE) [Concomitant]

REACTIONS (3)
  - INTESTINAL INFARCTION [None]
  - SEPTIC SHOCK [None]
  - VOLVULUS OF BOWEL [None]
